FAERS Safety Report 7248785-3 (Version None)
Quarter: 2011Q1

REPORT INFORMATION
  Report Type: 
  Country: None (occurrence: None)
  Receive Date: 20110128
  Receipt Date: 20110113
  Transmission Date: 20110831
  Serious: Yes (Hospitalization)
  Sender: FDA-Public Use
  Company Number: US-EISAI INC-E7273-00209-SPO-US

PATIENT
  Sex: Male
  Weight: 89 kg

DRUGS (2)
  1. TARGRETIN [Suspect]
     Indication: MYELODYSPLASTIC SYNDROME
     Route: 048
     Dates: start: 20110103, end: 20110107
  2. SARGRAMOSTIM [Suspect]
     Indication: MYELODYSPLASTIC SYNDROME
     Route: 058
     Dates: start: 20110103, end: 20110107

REACTIONS (3)
  - PNEUMONIA [None]
  - DYSPNOEA [None]
  - ATRIAL FLUTTER [None]
